FAERS Safety Report 23145622 (Version 2)
Quarter: 2024Q1

REPORT INFORMATION
  Report Type: Report from Study
  Country: US (occurrence: US)
  Receive Date: 20231103
  Receipt Date: 20240125
  Transmission Date: 20240410
  Serious: Yes (Hospitalization)
  Sender: FDA-Public Use
  Company Number: US-BoehringerIngelheim-2023-BI-239392

PATIENT
  Sex: Male

DRUGS (1)
  1. OFEV [Suspect]
     Active Substance: NINTEDANIB
     Indication: Idiopathic pulmonary fibrosis
     Route: 048

REACTIONS (7)
  - Cerebral disorder [Unknown]
  - Surgery [Unknown]
  - Pruritus [Recovered/Resolved]
  - Tremor [Unknown]
  - Balance disorder [Unknown]
  - COVID-19 [Unknown]
  - Impaired work ability [Unknown]
